FAERS Safety Report 17893616 (Version 1)
Quarter: 2020Q2

REPORT INFORMATION
  Report Type: Spontaneous
  Country: FR (occurrence: FR)
  Receive Date: 20200615
  Receipt Date: 20200615
  Transmission Date: 20200714
  Serious: Yes (Death, Hospitalization)
  Sender: FDA-Public Use
  Company Number: FR-CADILA HEALTHCARE LIMITED-FR-ZYDUS-029604

PATIENT

DRUGS (12)
  1. BISOPROLOL (FUMARATE DE) [Concomitant]
     Active Substance: BISOPROLOL FUMARATE
     Indication: PRODUCT USED FOR UNKNOWN INDICATION
     Dosage: 5 MILLIGRAM,(INTERVAL :1 DAYS)
     Route: 048
  2. HEMIGOXINE NATIVELLE 0,125 MG, COMPRIM [Concomitant]
     Indication: ATRIAL FIBRILLATION
     Dosage: 1 DOSAGE FORM,(INTERVAL :2 DAYS)
     Route: 048
  3. COUMADINE 2 MG, COMPRIM  S CABLE [Concomitant]
     Indication: ATRIAL FIBRILLATION
     Dosage: ()
     Route: 048
  4. LASILIX FAIBLE 20 MG, COMPRIM [Concomitant]
     Indication: CHRONIC KIDNEY DISEASE
     Dosage: 1 DOSAGE FORM,(INTERVAL :1 DAYS)
     Route: 048
  5. ALLOPURINOL. [Suspect]
     Active Substance: ALLOPURINOL
     Indication: GOUT
     Dosage: 1 DOSAGE FORM,(INTERVAL :1 DAYS)
     Route: 048
     Dates: start: 20180731, end: 20180823
  6. LASILIX [Concomitant]
     Active Substance: FUROSEMIDE
     Indication: CHRONIC KIDNEY DISEASE
     Dosage: 1 DOSAGE FORM,(INTERVAL :1 DAYS)
     Route: 048
  7. BISOPROLOL [Concomitant]
     Active Substance: BISOPROLOL
     Indication: PRODUCT USED FOR UNKNOWN INDICATION
     Dosage: 5 MILLIGRAM,(INTERVAL :1 DAYS)
     Route: 048
  8. HEMIGOXINE NATIVELLE [Concomitant]
     Active Substance: DIGOXIN
     Indication: ATRIAL FIBRILLATION
     Dosage: 1 DOSAGE FORM,(INTERVAL :2 DAYS)
     Route: 048
  9. RAMIPRIL. [Concomitant]
     Active Substance: RAMIPRIL
     Indication: PRODUCT USED FOR UNKNOWN INDICATION
     Dosage: 2.5 MILLIGRAM,(INTERVAL :1 DAYS)
     Route: 048
  10. RAMIPRIL. [Concomitant]
     Active Substance: RAMIPRIL
     Indication: PRODUCT USED FOR UNKNOWN INDICATION
     Dosage: 2.5 MILLIGRAM,(INTERVAL :1 DAYS)
     Route: 048
  11. COLCHICINE. [Suspect]
     Active Substance: COLCHICINE
     Indication: GOUT
     Dosage: 1 MILLIGRAM,(INTERVAL :1 DAYS)
     Route: 048
     Dates: start: 20180731, end: 20180823
  12. COUMADINE [Concomitant]
     Active Substance: WARFARIN SODIUM
     Indication: ATRIAL FIBRILLATION
     Route: 029

REACTIONS (7)
  - Diarrhoea [Recovered/Resolved]
  - Stevens-Johnson syndrome [Fatal]
  - Melaena [Recovered/Resolved]
  - International normalised ratio increased [Recovered/Resolved]
  - Shock haemorrhagic [Fatal]
  - Potentiating drug interaction [Fatal]
  - Accidental overdose [Fatal]

NARRATIVE: CASE EVENT DATE: 20180731
